FAERS Safety Report 15370048 (Version 1)
Quarter: 2018Q3

REPORT INFORMATION
  Report Type: Spontaneous
  Country: US (occurrence: US)
  Receive Date: 20180904
  Receipt Date: 20180904
  Transmission Date: 20181010
  Serious: Yes (Hospitalization)
  Sender: FDA-Public Use
  Company Number: None

PATIENT
  Age: 54 Year
  Sex: Female

DRUGS (22)
  1. ZOLPIDEM [Concomitant]
     Active Substance: ZOLPIDEM\ZOLPIDEM TARTRATE
  2. BACLOFEN. [Concomitant]
     Active Substance: BACLOFEN
  3. CYMBALTA [Concomitant]
     Active Substance: DULOXETINE HYDROCHLORIDE
  4. BUPROPRION [Concomitant]
     Active Substance: BUPROPION
  5. CYANOCOBALAMIN. [Concomitant]
     Active Substance: CYANOCOBALAMIN
  6. PREDNISONE. [Concomitant]
     Active Substance: PREDNISONE
  7. PREMARIN [Concomitant]
     Active Substance: ESTROGENS, CONJUGATED
  8. AMBIEN [Concomitant]
     Active Substance: ZOLPIDEM TARTRATE
  9. BENAZAPRIL [Concomitant]
  10. ESTRACE [Concomitant]
     Active Substance: ESTRADIOL
  11. HYDROCYCHOLORQUINE [Concomitant]
  12. LEVOTHYROXINE. [Concomitant]
     Active Substance: LEVOTHYROXINE
  13. LYRICA [Concomitant]
     Active Substance: PREGABALIN
  14. EVOXAC [Concomitant]
     Active Substance: CEVIMELINE HYDROCHLORIDE
  15. METHOTREXATE. [Concomitant]
     Active Substance: METHOTREXATE
  16. CELEBREX [Concomitant]
     Active Substance: CELECOXIB
  17. CEVIMELINE. [Concomitant]
     Active Substance: CEVIMELINE
  18. FORTEO [Suspect]
     Active Substance: TERIPARATIDE
     Indication: OSTEOPOROSIS
     Dosage: ?          OTHER STRENGTH:600/2.4 UG/ML;?
     Route: 058
     Dates: start: 20171211, end: 20180831
  19. FOLIC ACID. [Concomitant]
     Active Substance: FOLIC ACID
  20. NUCYNTA [Concomitant]
     Active Substance: TAPENTADOL HYDROCHLORIDE
  21. VICTOZA [Concomitant]
     Active Substance: LIRAGLUTIDE
  22. VITAMIN B12 [Concomitant]
     Active Substance: CYANOCOBALAMIN

REACTIONS (2)
  - Hospitalisation [None]
  - Drug dose omission [None]

NARRATIVE: CASE EVENT DATE: 20180827
